FAERS Safety Report 21809445 (Version 1)
Quarter: 2023Q1

REPORT INFORMATION
  Report Type: Spontaneous
  Country: IN (occurrence: IN)
  Receive Date: 20230103
  Receipt Date: 20230103
  Transmission Date: 20230418
  Serious: Yes (Other)
  Sender: FDA-Public Use
  Company Number: IN-SUN PHARMACEUTICAL INDUSTRIES LTD-2020R1-260262

PATIENT
  Age: 82 Year
  Sex: Male

DRUGS (2)
  1. ESCITALOPRAM [Suspect]
     Active Substance: ESCITALOPRAM OXALATE
     Indication: Mental disorder
     Dosage: 10 MILLIGRAM OD
     Route: 065
  2. ZOLPIDEM [Suspect]
     Active Substance: ZOLPIDEM TARTRATE
     Indication: Mental disorder
     Dosage: 10 MILLIGRAM OD

REACTIONS (3)
  - Serotonin syndrome [Unknown]
  - Intentional overdose [Unknown]
  - Toxicity to various agents [Unknown]
